FAERS Safety Report 9036982 (Version 1)
Quarter: 2013Q1

REPORT INFORMATION
  Report Type: Spontaneous
  Country: DK (occurrence: None)
  Receive Date: 20130115
  Receipt Date: 20130115
  Transmission Date: 20140127
  Serious: Yes (Death)
  Sender: FDA-Public Use
  Company Number: 2013MA000312

PATIENT
  Age: 78 Year
  Sex: Female

DRUGS (16)
  1. ASPIRIN AND BUTALBITAL AND CAFFEINE [Suspect]
     Indication: PRODUCT USED FOR UNKNOWN INDICATION
     Dates: start: 20120718
  2. CLOPIDOGREL (CLOPIDOGREL) [Suspect]
     Indication: PRODUCT USED FOR UNKNOWN INDICATION
  3. INNOHEP [Suspect]
     Indication: PRODUCT USED FOR UNKNOWN INDICATION
  4. BRILIQUE [Suspect]
     Indication: PRODUCT USED FOR UNKNOWN INDICATION
     Dates: start: 20120718, end: 20120719
  5. WARFARIN SODIUM [Suspect]
     Indication: ATRIAL FIBRILLATION
     Dates: start: 20120603
  6. ANGIOX [Suspect]
     Indication: PRODUCT USED FOR UNKNOWN INDICATION
     Route: 042
     Dates: start: 20120718, end: 20120718
  7. SIMVASTATIN ARROW [Concomitant]
  8. NEXIUM [Concomitant]
  9. CEFOTAXIM TEVA [Concomitant]
  10. SELOKEN [Concomitant]
  11. ALVEDON [Concomitant]
  12. KAJOS [Concomitant]
  13. DIGOXIN BIOPHAUSIA [Concomitant]
  14. FURIX [Concomitant]
  15. GLYTRIN [Concomitant]
  16. ENALAPRIL [Concomitant]

REACTIONS (4)
  - Pulmonary haemorrhage [None]
  - Acute respiratory distress syndrome [None]
  - Anuria [None]
  - Dialysis [None]
